FAERS Safety Report 20461519 (Version 2)
Quarter: 2022Q1

REPORT INFORMATION
  Report Type: Report from Study
  Country: US (occurrence: US)
  Receive Date: 20220211
  Receipt Date: 20220323
  Transmission Date: 20220423
  Serious: Yes (Hospitalization)
  Sender: FDA-Public Use
  Company Number: US-BIONICAL EMAS-2022ETO000021

PATIENT

DRUGS (1)
  1. ALKINDI SPRINKLE [Suspect]
     Active Substance: HYDROCORTISONE
     Indication: Adrenal insufficiency
     Dosage: 1 MG, UNK
     Route: 048
     Dates: start: 20211031

REACTIONS (2)
  - Infantile spasms [Recovering/Resolving]
  - Tonic convulsion [Recovering/Resolving]

NARRATIVE: CASE EVENT DATE: 20220117
